FAERS Safety Report 6846366-4 (Version None)
Quarter: 2010Q3

REPORT INFORMATION
  Report Type: 
  Country: None (occurrence: None)
  Receive Date: 20100715
  Receipt Date: 20080226
  Transmission Date: 20110219
  Serious: No
  Sender: FDA-Public Use
  Company Number: US-PFIZER INC-2007076748

PATIENT
  Sex: Female
  Weight: 54.5 kg

DRUGS (4)
  1. CHANTIX [Suspect]
     Indication: SMOKING CESSATION THERAPY
     Dates: start: 20070903
  2. INSULIN [Concomitant]
     Indication: DIABETES MELLITUS
  3. TOPROL-XL [Concomitant]
     Indication: SUPRAVENTRICULAR TACHYCARDIA
  4. DIGITEK [Concomitant]
     Indication: SUPRAVENTRICULAR TACHYCARDIA

REACTIONS (5)
  - ABNORMAL DREAMS [None]
  - DYSGEUSIA [None]
  - INCORRECT DOSE ADMINISTERED [None]
  - NAUSEA [None]
  - NOCTURIA [None]
